FAERS Safety Report 5083743-9 (Version None)
Quarter: 2006Q3

REPORT INFORMATION
  Report Type: 
  Country: None (occurrence: None)
  Receive Date: 20060814
  Receipt Date: 20060728
  Transmission Date: 20061208
  Serious: Yes (Death)
  Sender: FDA-Public Use
  Company Number: 35830

PATIENT
  Age: 40 Year
  Sex: Female

DRUGS (3)
  1. ALCAINE [Suspect]
     Indication: INTRAOCULAR PRESSURE TEST
     Dosage: OPHT
     Route: 047
     Dates: start: 20060201, end: 20060201
  2. MYDRIACYL [Suspect]
     Indication: FUNDOSCOPY
     Dosage: OPHT
     Route: 047
     Dates: start: 20060201
  3. FLUORESCEIN SODIUM [Concomitant]

REACTIONS (5)
  - EMPHYSEMA [None]
  - MYOCARDIAL INFARCTION [None]
  - PAIN [None]
  - PURULENCE [None]
  - PYELONEPHRITIS [None]
